FAERS Safety Report 5401983-3 (Version None)
Quarter: 2007Q3

REPORT INFORMATION
  Report Type: 
  Country: None (occurrence: None)
  Receive Date: 20070727
  Receipt Date: 20070710
  Transmission Date: 20080115
  Serious: No
  Sender: FDA-Public Use
  Company Number: 032-111

PATIENT
  Age: 61 Year
  Sex: Male

DRUGS (3)
  1. TEVETEN [Suspect]
     Indication: HYPERTENSION
     Dates: start: 20010426, end: 20010501
  2. TEVETEN HCT [Suspect]
     Indication: HYPERTENSION
     Dates: start: 20010601, end: 20060501
  3. CARMEN (LERCANDIPINE HYDROCHLORIDE) [Concomitant]

REACTIONS (2)
  - CHRONIC SINUSITIS [None]
  - RESPIRATORY TRACT INFECTION [None]
